FAERS Safety Report 7768882-3 (Version None)
Quarter: 2011Q3

REPORT INFORMATION
  Report Type: 
  Country: None (occurrence: None)
  Receive Date: 20110922
  Receipt Date: 20110307
  Transmission Date: 20111222
  Serious: No
  Sender: FDA-Public Use
  Company Number: US-ASTRAZENECA-2011SE12738

PATIENT
  Age: 49 Year
  Sex: Female

DRUGS (4)
  1. XANAX [Concomitant]
     Indication: ANXIETY
  2. SEROQUEL [Suspect]
     Indication: BIPOLAR DISORDER
     Route: 048
     Dates: start: 20010101
  3. TEGRETOL [Concomitant]
     Dates: start: 20050101
  4. EFFEXOR [Concomitant]
     Dates: start: 20050101

REACTIONS (5)
  - INSOMNIA [None]
  - SLUGGISHNESS [None]
  - THERAPEUTIC RESPONSE UNEXPECTED [None]
  - NO ADVERSE EVENT [None]
  - SLEEP-RELATED EATING DISORDER [None]
